FAERS Safety Report 5101264-1 (Version None)
Quarter: 2006Q3

REPORT INFORMATION
  Report Type: 
  Country: None (occurrence: None)
  Receive Date: 20060911
  Receipt Date: 20060831
  Transmission Date: 20061208
  Serious: Yes (Hospitalization)
  Sender: FDA-Public Use
  Company Number: CH-AVENTIS-200614642EU

PATIENT
  Age: 70 Year
  Sex: Female

DRUGS (15)
  1. LASIX [Suspect]
     Indication: DRUG USE FOR UNKNOWN INDICATION
     Dosage: DOSE UNIT: MILLIGRAM PER HOUR
     Route: 041
     Dates: start: 20060710
  2. ZOMETA [Suspect]
     Indication: CALCIUM METABOLISM DISORDER
     Dosage: DOSE: 4MG/5ML
     Route: 041
     Dates: start: 20060713, end: 20060713
  3. DEXAMETHASONE [Suspect]
     Indication: DRUG USE FOR UNKNOWN INDICATION
     Dates: start: 20060713, end: 20060714
  4. MERONEM [Concomitant]
     Indication: BRONCHOPNEUMONIA
     Route: 041
     Dates: start: 20060715, end: 20060716
  5. MERONEM [Concomitant]
     Route: 041
     Dates: start: 20060717, end: 20060720
  6. HALDOL [Concomitant]
     Indication: RESTLESSNESS
     Route: 040
     Dates: start: 20060715, end: 20060724
  7. HALDOL [Concomitant]
     Indication: AGITATION
     Route: 040
     Dates: start: 20060715, end: 20060724
  8. NEXIUM [Concomitant]
     Indication: GASTROOESOPHAGEAL REFLUX DISEASE
     Route: 048
     Dates: start: 20060715, end: 20060724
  9. ELTROXIN [Concomitant]
     Indication: HYPOTHYROIDISM
     Route: 048
     Dates: start: 20060715, end: 20060724
  10. GRANOCYTE ^RHONE-POULENC^ [Concomitant]
     Route: 058
     Dates: start: 20060715, end: 20060717
  11. KONAKION [Concomitant]
     Route: 048
     Dates: start: 20060715, end: 20060724
  12. DAFALGAN [Concomitant]
     Indication: PAIN
     Route: 048
     Dates: start: 20060717, end: 20060724
  13. ACIDUM FOLICUM STREULI [Concomitant]
     Route: 048
     Dates: start: 20060720, end: 20060724
  14. DISTRANEURIN [Concomitant]
     Indication: SLEEP DISORDER
     Route: 048
     Dates: start: 20060720, end: 20060724
  15. RESYL [Concomitant]
     Indication: COUGH
     Dosage: DOSE: 100MG/10MG
     Route: 048
     Dates: start: 20060720, end: 20060724

REACTIONS (5)
  - GRAND MAL CONVULSION [None]
  - HAEMODIALYSIS [None]
  - HYPOCALCAEMIA [None]
  - MEDICATION ERROR [None]
  - OVERDOSE [None]
